FAERS Safety Report 17229062 (Version 1)
Quarter: 2020Q1

REPORT INFORMATION
  Report Type: Report from Study
  Country: EG (occurrence: EG)
  Receive Date: 20200103
  Receipt Date: 20200103
  Transmission Date: 20200409
  Serious: Yes (Other)
  Sender: FDA-Public Use
  Company Number: NVSC2019EG083957

PATIENT
  Sex: Male

DRUGS (1)
  1. GLIVEC [Suspect]
     Active Substance: IMATINIB MESYLATE
     Indication: CHRONIC MYELOID LEUKAEMIA
     Dosage: 400 MG, QD
     Route: 048

REACTIONS (6)
  - Decreased immune responsiveness [Not Recovered/Not Resolved]
  - Ascites [Recovering/Resolving]
  - Anaemia [Recovering/Resolving]
  - Oedema peripheral [Recovering/Resolving]
  - Abdominal pain lower [Recovered/Resolved]
  - Thrombocytopenia [Not Recovered/Not Resolved]
